FAERS Safety Report 25707433 (Version 1)
Quarter: 2025Q3

REPORT INFORMATION
  Report Type: Report from Study
  Country: EU (occurrence: EU)
  Receive Date: 20250820
  Receipt Date: 20250820
  Transmission Date: 20251021
  Serious: Yes (Other)
  Sender: MYLAN
  Company Number: EU-MYLANLABS-2025M1070349

PATIENT
  Age: 60 Year
  Sex: Male

DRUGS (8)
  1. ATORVASTATIN [Suspect]
     Active Substance: ATORVASTATIN
     Indication: Hyperlipidaemia
  2. ATORVASTATIN [Suspect]
     Active Substance: ATORVASTATIN
     Route: 065
  3. ATORVASTATIN [Suspect]
     Active Substance: ATORVASTATIN
     Route: 065
  4. ATORVASTATIN [Suspect]
     Active Substance: ATORVASTATIN
  5. EZETIMIBE [Suspect]
     Active Substance: EZETIMIBE
     Indication: Hyperlipidaemia
  6. EZETIMIBE [Suspect]
     Active Substance: EZETIMIBE
     Route: 065
  7. EZETIMIBE [Suspect]
     Active Substance: EZETIMIBE
     Route: 065
  8. EZETIMIBE [Suspect]
     Active Substance: EZETIMIBE

REACTIONS (2)
  - Myasthenia gravis [Unknown]
  - Hepatotoxicity [Unknown]
